FAERS Safety Report 7119089-4 (Version None)
Quarter: 2010Q4

REPORT INFORMATION
  Report Type: 
  Country: None (occurrence: None)
  Receive Date: 20101123
  Receipt Date: 20101117
  Transmission Date: 20110411
  Serious: Yes (Death)
  Sender: FDA-Public Use
  Company Number: B0685446A

PATIENT
  Age: 62 Year
  Sex: Male
  Weight: 60 kg

DRUGS (5)
  1. ARIXTRA [Suspect]
     Dosage: 2.5MG PER DAY
     Route: 065
     Dates: start: 20101030, end: 20101101
  2. CLOPIDOGREL [Concomitant]
  3. ENOXAPARIN SODIUM [Concomitant]
  4. ASPIRIN [Concomitant]
  5. CILOSTAZOL [Concomitant]

REACTIONS (1)
  - HAEMORRHAGE [None]
